FAERS Safety Report 4422478-X (Version None)
Quarter: 2004Q3

REPORT INFORMATION
  Report Type: 
  Country: None (occurrence: None)
  Receive Date: 20040806
  Receipt Date: 20040730
  Transmission Date: 20050211
  Serious: Yes (Other)
  Sender: FDA-Public Use
  Company Number: KII-2004-0012650

PATIENT
  Age: 17 Year
  Sex: Male

DRUGS (5)
  1. OXYCONTIN [Suspect]
     Dosage: ORAL
     Route: 048
  2. COCAINE (COCAINE) [Suspect]
  3. ETHANOL (ETHANOL) [Suspect]
     Dosage: ORAL
     Route: 048
  4. MARIJUANA (CANNABIS) [Suspect]
  5. BENZODIAZEPINE DERIVATIVES() [Suspect]
     Dosage: ORAL
     Route: 048

REACTIONS (8)
  - ANOXIC ENCEPHALOPATHY [None]
  - BLOOD PH DECREASED [None]
  - BLOOD PRESSURE DECREASED [None]
  - DRUG SCREEN POSITIVE [None]
  - HEART RATE INCREASED [None]
  - PARALYSIS [None]
  - PCO2 INCREASED [None]
  - PNEUMONIA ASPIRATION [None]
